FAERS Safety Report 15765416 (Version 1)
Quarter: 2018Q4

REPORT INFORMATION
  Report Type: Spontaneous
  Country: US (occurrence: US)
  Receive Date: 20181227
  Receipt Date: 20181227
  Transmission Date: 20190205
  Serious: No
  Sender: FDA-Public Use
  Company Number: US-SA-2018SA388125

PATIENT
  Age: 59 Year
  Sex: Female
  Weight: 49.89 kg

DRUGS (19)
  1. DICOFENAC [Concomitant]
  2. DUEXIS [Concomitant]
     Active Substance: FAMOTIDINE\IBUPROFEN
  3. VENTOLIN [Concomitant]
     Active Substance: ALBUTEROL SULFATE
  4. OMEPRAZOLE. [Concomitant]
     Active Substance: OMEPRAZOLE
  5. ESZOPICLONE. [Concomitant]
     Active Substance: ESZOPICLONE
  6. BROMPHENIRAMINE [Concomitant]
     Active Substance: BROMPHENIRAMINE
  7. ESCITALOPRAM [Concomitant]
     Active Substance: ESCITALOPRAM OXALATE
  8. MONTELUKAST [Concomitant]
     Active Substance: MONTELUKAST SODIUM
  9. LEVEMIR [Concomitant]
     Active Substance: INSULIN DETEMIR
  10. DUPIXENT [Suspect]
     Active Substance: DUPILUMAB
     Indication: DERMATITIS ATOPIC
     Dosage: 300 MG, QOW
     Route: 058
     Dates: start: 20181114
  11. AZELASTINE. [Concomitant]
     Active Substance: AZELASTINE HYDROCHLORIDE
  12. MOMETASONE FUROATE. [Concomitant]
     Active Substance: MOMETASONE FUROATE
  13. ATORVASTATIN [Concomitant]
     Active Substance: ATORVASTATIN
  14. PREDNISONE. [Concomitant]
     Active Substance: PREDNISONE
  15. SYMBICORT [Concomitant]
     Active Substance: BUDESONIDE\FORMOTEROL FUMARATE DIHYDRATE
  16. QNASL [Concomitant]
     Active Substance: BECLOMETHASONE DIPROPIONATE
  17. OLOPATADINE. [Concomitant]
     Active Substance: OLOPATADINE
  18. IBUPROFEN. [Concomitant]
     Active Substance: IBUPROFEN
  19. JANUMET [Concomitant]
     Active Substance: METFORMIN HYDROCHLORIDE\SITAGLIPTIN PHOSPHATE

REACTIONS (1)
  - Eye irritation [Recovered/Resolved]

NARRATIVE: CASE EVENT DATE: 201811
